FAERS Safety Report 7919133-8 (Version None)
Quarter: 2011Q4

REPORT INFORMATION
  Report Type: 
  Country: None (occurrence: None)
  Receive Date: 20111117
  Receipt Date: 20111107
  Transmission Date: 20120403
  Serious: Yes (Hospitalization, Other)
  Sender: FDA-Public Use
  Company Number: US-ROCHE-1009665

PATIENT
  Sex: Female

DRUGS (2)
  1. ZELBORAF [Suspect]
     Route: 048
     Dates: start: 20111105
  2. ZELBORAF [Suspect]
     Indication: MALIGNANT MELANOMA
     Route: 048
     Dates: start: 20110524, end: 20111026

REACTIONS (10)
  - ALOPECIA [None]
  - NEOPLASM PROGRESSION [None]
  - FATIGUE [None]
  - RADICULAR PAIN [None]
  - WOUND INFECTION [None]
  - INFECTED NEOPLASM [None]
  - MALIGNANT MELANOMA [None]
  - VISUAL IMPAIRMENT [None]
  - ANAEMIA [None]
  - NEUROPATHY PERIPHERAL [None]
